FAERS Safety Report 6526103-3 (Version None)
Quarter: 2010Q1

REPORT INFORMATION
  Report Type: 
  Country: None (occurrence: None)
  Receive Date: 20100104
  Receipt Date: 20091222
  Transmission Date: 20100710
  Serious: Yes (Other)
  Sender: FDA-Public Use
  Company Number: ES-PFIZER INC-2009313976

PATIENT
  Age: 66 Year
  Sex: Male

DRUGS (1)
  1. SUNITINIB MALATE [Suspect]
     Indication: RENAL CELL CARCINOMA
     Dosage: 50 MG, 1X/DAY, DURING 4 WEEKS FOLLOWED BY 2 WEEKS REST
     Dates: start: 20070101

REACTIONS (2)
  - FOCAL SEGMENTAL GLOMERULOSCLEROSIS [None]
  - THROMBOTIC MICROANGIOPATHY [None]
